FAERS Safety Report 24052095 (Version 1)
Quarter: 2024Q3

REPORT INFORMATION
  Report Type: Spontaneous
  Country: US (occurrence: US)
  Receive Date: 20240704
  Receipt Date: 20240704
  Transmission Date: 20241016
  Serious: Yes (Other)
  Sender: NOVARTIS
  Company Number: US-002147023-NVSC2024US137520

PATIENT
  Sex: Male

DRUGS (1)
  1. LEQVIO [Suspect]
     Active Substance: INCLISIRAN SODIUM
     Indication: Low density lipoprotein increased
     Dosage: 284 MG (2 THREE MONTHS APART, THEN 1 EVERY 6 MONTH)
     Route: 058

REACTIONS (2)
  - Paralysis [Recovered/Resolved]
  - Arthralgia [Recovered/Resolved]
